FAERS Safety Report 22073884 (Version 1)
Quarter: 2023Q1

REPORT INFORMATION
  Report Type: Spontaneous
  Country: US (occurrence: US)
  Receive Date: 20230308
  Receipt Date: 20230308
  Transmission Date: 20230418
  Serious: Yes (Other)
  Sender: FDA-Public Use
  Company Number: US-PADAGIS-2023PAD00269

PATIENT

DRUGS (1)
  1. NITROGLYCERIN [Suspect]
     Active Substance: NITROGLYCERIN
     Indication: Angina pectoris
     Dosage: 2 TIME DAILY, 2 SPRAYS (AS NEEDED)
     Route: 065
     Dates: start: 202212

REACTIONS (1)
  - Condition aggravated [Not Recovered/Not Resolved]
